FAERS Safety Report 22299673 (Version 1)
Quarter: 2023Q2

REPORT INFORMATION
  Report Type: Spontaneous
  Country: US (occurrence: None)
  Receive Date: 20230508
  Receipt Date: 20230508
  Transmission Date: 20230722
  Serious: Yes (Other)
  Sender: FDA-Public Use
  Company Number: None

PATIENT
  Age: 36 Year
  Sex: Female
  Weight: 63 kg

DRUGS (9)
  1. MONTELUKAST [Suspect]
     Active Substance: MONTELUKAST SODIUM
     Indication: Asthma
  2. MONTELUKAST [Suspect]
     Active Substance: MONTELUKAST SODIUM
     Indication: Multiple allergies
  3. BREO ELLIPTA [Concomitant]
     Active Substance: FLUTICASONE FUROATE\VILANTEROL TRIFENATATE
  4. SERTRALINE [Concomitant]
     Active Substance: SERTRALINE HYDROCHLORIDE
  5. PRAZOSIN [Concomitant]
     Active Substance: PRAZOSIN
  6. MOMETASONE [Concomitant]
     Active Substance: MOMETASONE
  7. NORETHINDRONE [Concomitant]
     Active Substance: NORETHINDRONE
  8. Xyzal (generic) [Concomitant]
  9. Lipo flavonoid [Concomitant]

REACTIONS (9)
  - Nightmare [None]
  - Abnormal dreams [None]
  - Depressed mood [None]
  - Anxiety [None]
  - Anger [None]
  - Feeling abnormal [None]
  - Sleep disorder [None]
  - Hallucination, visual [None]
  - Screaming [None]
